FAERS Safety Report 10351338 (Version 2)
Quarter: 2014Q3

REPORT INFORMATION
  Report Type: Spontaneous
  Country: AR (occurrence: AR)
  Receive Date: 20140730
  Receipt Date: 20140730
  Transmission Date: 20150326
  Serious: Yes (Death)
  Sender: FDA-Public Use
  Company Number: AR-BANPHARM-20142895

PATIENT
  Age: 54 Year
  Sex: Male

DRUGS (5)
  1. RASAGILINE [Suspect]
     Active Substance: RASAGILINE
     Dosage: 1 MG,
  2. ENTACAPONE. [Suspect]
     Active Substance: ENTACAPONE
     Dosage: 800 MG,
  3. AMANTADINE UNKNOWN PRODUCT [Suspect]
     Active Substance: AMANTADINE
     Indication: PARKINSON^S DISEASE
     Dosage: 300 MG,
  4. LEVODOPA [Suspect]
     Active Substance: LEVODOPA
     Dosage: 600 MG,
  5. CARBIDOPA. [Suspect]
     Active Substance: CARBIDOPA
     Dosage: 60 MG,

REACTIONS (2)
  - Sudden death [Fatal]
  - Cardiac failure chronic [Fatal]

NARRATIVE: CASE EVENT DATE: 20090130
